FAERS Safety Report 6810998-X (Version None)
Quarter: 2010Q2

REPORT INFORMATION
  Report Type: 
  Country: None (occurrence: None)
  Receive Date: 20100630
  Receipt Date: 20090320
  Transmission Date: 20101027
  Serious: No
  Sender: FDA-Public Use
  Company Number: US-PFIZER INC-2009164682

PATIENT
  Sex: Female
  Weight: 99.79 kg

DRUGS (9)
  1. ESTRING [Suspect]
     Indication: VULVOVAGINAL DRYNESS
     Dosage: UNK
     Dates: start: 20081101
  2. ESTRING [Suspect]
     Indication: VULVOVAGINAL PRURITUS
  3. ACCOLATE [Concomitant]
     Indication: ASTHMA
  4. PERCOCET [Concomitant]
  5. PHENOBARBITAL [Concomitant]
  6. SYNTHROID [Concomitant]
  7. ZETIA [Concomitant]
  8. VALSARTAN [Concomitant]
  9. ALLOPURINOL [Concomitant]

REACTIONS (1)
  - VAGINAL HAEMORRHAGE [None]
